FAERS Safety Report 10494975 (Version 1)
Quarter: 2014Q3

REPORT INFORMATION
  Report Type: Spontaneous
  Country: US (occurrence: None)
  Receive Date: 20140815
  Receipt Date: 20140815
  Transmission Date: 20150326
  Serious: Yes (Other)
  Sender: FDA-Public Use
  Company Number: ADR-2014-00301

PATIENT
  Age: 74 Year
  Sex: Female

DRUGS (1)
  1. BACLOFEN. [Suspect]
     Active Substance: BACLOFEN
     Indication: MUSCLE SPASTICITY
     Dosage: 30MCG/DAY

REACTIONS (2)
  - Therapeutic response changed [None]
  - Decubitus ulcer [None]

NARRATIVE: CASE EVENT DATE: 20131219
